FAERS Safety Report 7469042-6 (Version None)
Quarter: 2011Q2

REPORT INFORMATION
  Report Type: 
  Country: None (occurrence: None)
  Receive Date: 20110429
  Receipt Date: 20110328
  Transmission Date: 20111010
  Serious: No
  Sender: FDA-Public Use
  Company Number: 292

PATIENT
  Age: 25 Year
  Sex: Female

DRUGS (1)
  1. LORAZEPAM [Suspect]
     Dosage: ORAL
     Route: 048

REACTIONS (6)
  - ABNORMAL DREAMS [None]
  - FEELING ABNORMAL [None]
  - VOMITING [None]
  - HYPERHIDROSIS [None]
  - MUSCLE SPASMS [None]
  - ABDOMINAL PAIN UPPER [None]
